FAERS Safety Report 8108342-3 (Version None)
Quarter: 2012Q1

REPORT INFORMATION
  Report Type: 
  Country: None (occurrence: None)
  Receive Date: 20120202
  Receipt Date: 20120124
  Transmission Date: 20120608
  Serious: Yes (Hospitalization, Other)
  Sender: FDA-Public Use
  Company Number: PHEH2011US011205

PATIENT
  Age: 61 Year
  Sex: Male
  Weight: 76.19 kg

DRUGS (31)
  1. AMMONIUM LACTATE [Concomitant]
     Indication: DRY SKIN
     Route: 061
     Dates: start: 20100927
  2. BENZTROPINE MESYLATE [Concomitant]
     Indication: EXTRAPYRAMIDAL DISORDER
     Dosage: 2 MG, BID
     Route: 048
     Dates: start: 20110908, end: 20111128
  3. FANAPT [Suspect]
     Indication: SCHIZOAFFECTIVE DISORDER
     Dosage: 12 MG, BID
     Route: 048
     Dates: start: 20110101, end: 20111203
  4. BEN GAY [Concomitant]
     Indication: PAIN
     Route: 061
  5. EUCERIN CREME [Concomitant]
     Indication: DRY SKIN
     Route: 061
     Dates: start: 20100927
  6. GABAPENTIN [Concomitant]
     Dosage: 300 MG, TID
     Route: 048
     Dates: start: 20111117, end: 20111202
  7. DEPAKOTE [Suspect]
     Indication: SCHIZOAFFECTIVE DISORDER
     Dosage: 1500 MG, BID
  8. DIVALPROEX SODIUM [Concomitant]
     Indication: SCHIZOAFFECTIVE DISORDER
     Dosage: 1500 MG, BID
     Route: 048
     Dates: start: 20110802, end: 20111128
  9. FENOFIBRATE [Concomitant]
     Dosage: 48 MG, QD
     Route: 048
     Dates: start: 20111117, end: 20111128
  10. GABAPENTIN [Concomitant]
     Indication: NEURALGIA
     Dosage: 300 MG, TID
     Route: 048
     Dates: start: 20110929, end: 20111128
  11. LOPERAMIDE HCL [Concomitant]
     Indication: DIARRHOEA
     Dosage: 2 MG, QD
     Route: 048
     Dates: start: 20100927
  12. METFORMIN HCL [Concomitant]
     Indication: DIABETES MELLITUS MALNUTRITION-RELATED
     Dosage: 500 MG, TID
     Route: 048
     Dates: start: 20101115
  13. TEAR DROP [Concomitant]
     Indication: DRY EYE
     Dosage: 1 DRP, QID
     Route: 047
     Dates: start: 20100927
  14. FENOFIBRATE [Concomitant]
     Indication: HYPERTRIGLYCERIDAEMIA
     Dosage: 48 MG, QD
     Route: 048
     Dates: start: 20110527
  15. GABAPENTIN [Concomitant]
     Dosage: 1200 MG, TID
     Route: 048
     Dates: end: 20111202
  16. GABAPENTIN [Concomitant]
     Dosage: 600 MG, TID
     Dates: start: 20111203
  17. LEVOTHYROXINE SODIUM [Concomitant]
     Dosage: 50 UG, QD
     Dates: start: 20111117, end: 20111128
  18. METFORMIN HCL [Concomitant]
     Dosage: 500 MG, TID
     Route: 048
     Dates: start: 20111117, end: 20111128
  19. ZINC OXIDE OINTMENT [Concomitant]
     Indication: RASH
     Route: 061
     Dates: start: 20100927
  20. ACETAMINOPHEN [Concomitant]
     Indication: PAIN
     Dosage: 650 MG, QD
     Route: 048
     Dates: start: 20100927
  21. BISACODYL [Concomitant]
     Indication: CONSTIPATION
     Dosage: 10 MG, QD
     Route: 054
     Dates: start: 20100927
  22. CALCIUM CARBONATE W/VITAMIN D NOS [Concomitant]
     Dosage: 1 DF, UNK (250MG/ 125 IU)
     Route: 048
     Dates: start: 20100928
  23. GABAPENTIN [Concomitant]
     Dosage: 600 MG, TID
     Route: 048
     Dates: start: 20110929, end: 20111128
  24. LEVOTHYROXINE SODIUM [Concomitant]
     Indication: HYPOTHYROIDISM
     Dosage: 50 UG, QD
     Route: 048
     Dates: start: 20110813
  25. SELENIUM SULFIDE [Concomitant]
     Indication: SEBORRHOEA
     Route: 061
     Dates: start: 20100927
  26. FAMOTIDINE [Concomitant]
     Dosage: 10 MG, UNK
     Route: 048
     Dates: end: 20111128
  27. FAMOTIDINE [Concomitant]
     Indication: DYSPEPSIA
     Dosage: 10 MG, UNK
     Route: 048
     Dates: start: 20110812, end: 20111117
  28. HYDROCODONE BITARTRATE AND ACETAMINOPHEN [Concomitant]
     Indication: MUSCULOSKELETAL PAIN
     Dosage: 1 DF, QD
     Route: 048
     Dates: start: 20111103, end: 20111128
  29. ILOPERIDONE [Concomitant]
     Indication: MENTAL DISORDER
     Dosage: 12 MG, BID
     Route: 048
     Dates: start: 20110527, end: 20111128
  30. DIVALPROEX SODIUM [Concomitant]
     Dosage: 1500 MG, BID
     Route: 048
     Dates: start: 20111117, end: 20111203
  31. ILOPERIDONE [Concomitant]
     Dosage: 12 MG, BID
     Route: 048
     Dates: start: 20111117, end: 20111205

REACTIONS (14)
  - LEUKOPENIA [None]
  - OBSESSIVE-COMPULSIVE DISORDER [None]
  - GRANULOCYTOPENIA [None]
  - COGNITIVE DISORDER [None]
  - MONOCYTE COUNT INCREASED [None]
  - PANCYTOPENIA [None]
  - THROMBOCYTOPENIA [None]
  - DEAFNESS NEUROSENSORY [None]
  - WEIGHT DECREASED [None]
  - LETHARGY [None]
  - MODERATE MENTAL RETARDATION [None]
  - HAEMOGLOBIN DECREASED [None]
  - OXYGEN SATURATION DECREASED [None]
  - HYPOTENSION [None]
